FAERS Safety Report 22169868 (Version 1)
Quarter: 2023Q2

REPORT INFORMATION
  Report Type: Spontaneous
  Country: GB (occurrence: GB)
  Receive Date: 20230404
  Receipt Date: 20230404
  Transmission Date: 20230722
  Serious: Yes (Other)
  Sender: FDA-Public Use
  Company Number: GB-ORGANON-O2302GBR002524

PATIENT
  Age: 19 Year
  Sex: Female

DRUGS (1)
  1. NEXPLANON [Suspect]
     Active Substance: ETONOGESTREL
     Indication: Contraception
     Dosage: 1 IMPLANT, LEFT UPPER ARM
     Route: 059
     Dates: start: 20220706

REACTIONS (10)
  - Device expulsion [Recovered/Resolved]
  - Medical device site scab [Unknown]
  - Skin wound [Unknown]
  - Implant site infection [Recovering/Resolving]
  - Implant site haemorrhage [Unknown]
  - Implant site bruising [Unknown]
  - Menstruation irregular [Recovered/Resolved]
  - Implant site swelling [Unknown]
  - Implant site pain [Unknown]
  - Complication associated with device [Not Recovered/Not Resolved]

NARRATIVE: CASE EVENT DATE: 20220101
